FAERS Safety Report 20239082 (Version 3)
Quarter: 2022Q1

REPORT INFORMATION
  Report Type: Spontaneous
  Country: US (occurrence: US)
  Receive Date: 20211228
  Receipt Date: 20220303
  Transmission Date: 20220423
  Serious: Yes (Other)
  Sender: FDA-Public Use
  Company Number: US-DECIPHERA PHARMACEUTICALS LLC-2021US001083

PATIENT
  Sex: Female

DRUGS (1)
  1. QINLOCK [Suspect]
     Active Substance: RIPRETINIB
     Indication: Gastrointestinal stromal tumour
     Dosage: 50 MILLIGRAM, TID
     Route: 048
     Dates: start: 20200925

REACTIONS (10)
  - Cataract operation [Unknown]
  - Impaired healing [Unknown]
  - Drug intolerance [Unknown]
  - Dental caries [Unknown]
  - Dental restoration failure [Unknown]
  - Skin papilloma [Unknown]
  - Abdominal pain upper [Unknown]
  - Gingival bleeding [Unknown]
  - Fatigue [Unknown]
  - Headache [Not Recovered/Not Resolved]
